FAERS Safety Report 9206665 (Version 1)
Quarter: 2013Q2

REPORT INFORMATION
  Report Type: Report from Study
  Country: CA (occurrence: CA)
  Receive Date: 20130403
  Receipt Date: 20130403
  Transmission Date: 20140414
  Serious: Yes (Other)
  Sender: FDA-Public Use
  Company Number: CA-JNJFOC-20130317868

PATIENT
  Age: 37 Year
  Sex: Female

DRUGS (4)
  1. SIMPONI [Suspect]
     Indication: RHEUMATOID ARTHRITIS
     Route: 058
     Dates: start: 20120111
  2. METHOTREXATE [Concomitant]
     Route: 058
  3. VENTOLIN [Concomitant]
  4. REACTINE [Concomitant]

REACTIONS (1)
  - Pneumonia [Unknown]
